FAERS Safety Report 6459955-6 (Version None)
Quarter: 2009Q4

REPORT INFORMATION
  Report Type: 
  Country: None (occurrence: None)
  Receive Date: 20091129
  Receipt Date: 20091116
  Transmission Date: 20100525
  Serious: Yes (Other)
  Sender: FDA-Public Use
  Company Number: PHEH2009US16128

PATIENT
  Sex: Male

DRUGS (1)
  1. GLEEVEC [Suspect]
     Indication: CHRONIC MYELOID LEUKAEMIA
     Dosage: 400 MG
     Dates: start: 20080401

REACTIONS (6)
  - ACCIDENT [None]
  - MEMORY IMPAIRMENT [None]
  - OEDEMA [None]
  - SKIN LACERATION [None]
  - SURGERY [None]
  - SUTURE INSERTION [None]
